FAERS Safety Report 20435776 (Version 3)
Quarter: 2022Q1

REPORT INFORMATION
  Report Type: Spontaneous
  Country: CA (occurrence: CA)
  Receive Date: 20220207
  Receipt Date: 20220225
  Transmission Date: 20220423
  Serious: Yes (Hospitalization, Other)
  Sender: FDA-Public Use
  Company Number: CA-BEH-2022141419

PATIENT
  Age: 57 Year
  Sex: Female
  Weight: 128 kg

DRUGS (3)
  1. PRIVIGEN [Suspect]
     Active Substance: HUMAN IMMUNOGLOBULIN G
     Indication: Primary immunodeficiency syndrome
     Dosage: UNK, 4/4 FRACTION
     Route: 042
     Dates: start: 20210602, end: 20210602
  2. CETIRIZINE HYDROCHLORIDE [Concomitant]
     Active Substance: CETIRIZINE HYDROCHLORIDE
     Indication: Premedication
     Dosage: 20 MILLIGRAM
     Route: 048
     Dates: start: 20210602
  3. ACRIVASTINE [Concomitant]
     Active Substance: ACRIVASTINE
     Indication: Premedication
     Dosage: 50 MILLIGRAM
     Route: 042
     Dates: start: 20210602

REACTIONS (12)
  - Hypersensitivity [Recovered/Resolved]
  - Transfusion reaction [Unknown]
  - Feeling hot [Recovered/Resolved]
  - Throat tightness [Recovered/Resolved]
  - Urticaria [Recovered/Resolved]
  - Pruritus [Recovered/Resolved]
  - Erythema [Recovered/Resolved]
  - Upper airway obstruction [Recovered/Resolved]
  - Respiratory distress [Recovered/Resolved]
  - Dysphonia [Recovered/Resolved]
  - Dysphagia [Recovered/Resolved]
  - Dyspnoea [Recovered/Resolved]

NARRATIVE: CASE EVENT DATE: 20210602
